FAERS Safety Report 9830074 (Version 1)
Quarter: 2014Q1

REPORT INFORMATION
  Report Type: Spontaneous
  Country: GB (occurrence: GB)
  Receive Date: 20140120
  Receipt Date: 20140120
  Transmission Date: 20141002
  Serious: Yes (Other)
  Sender: FDA-Public Use
  Company Number: GB-009507513-1401GBR005145

PATIENT
  Sex: Male

DRUGS (2)
  1. CLARITYN ALLERGY [Suspect]
     Indication: PRURITUS
     Dosage: 10 MG, QD
     Dates: start: 201307
  2. THYROXIN [Concomitant]

REACTIONS (2)
  - Acute myeloid leukaemia [Unknown]
  - Tumour marker increased [Unknown]
